FAERS Safety Report 19941074 (Version 1)
Quarter: 2021Q4

REPORT INFORMATION
  Report Type: Spontaneous
  Country: US (occurrence: US)
  Receive Date: 20211012
  Receipt Date: 20211012
  Transmission Date: 20220303
  Serious: Yes (Life-Threatening, Hospitalization, Other)
  Sender: FDA-Public Use
  Company Number: US-CIPLA LTD.-2021US06679

PATIENT

DRUGS (3)
  1. AMLODIPINE [Suspect]
     Active Substance: AMLODIPINE BESYLATE
     Dosage: 600 MG, UNK
     Route: 048
  2. CLONAZEPAM [Suspect]
     Active Substance: CLONAZEPAM
     Dosage: 60 MG, UNK
     Route: 048
  3. TRAMADOL [Suspect]
     Active Substance: TRAMADOL
     Dosage: 500 MG, UNK
     Route: 048

REACTIONS (5)
  - Non-cardiogenic pulmonary oedema [Recovering/Resolving]
  - Acute kidney injury [Recovering/Resolving]
  - Respiratory failure [Recovering/Resolving]
  - Intentional overdose [Unknown]
  - Suicide attempt [Unknown]
